FAERS Safety Report 4505125-8 (Version None)
Quarter: 2004Q4

REPORT INFORMATION
  Report Type: 
  Country: None (occurrence: None)
  Receive Date: 20041013
  Receipt Date: 20040318
  Transmission Date: 20050328
  Serious: Yes (Hospitalization)
  Sender: FDA-Public Use
  Company Number: US-JNJFOC-20040304683

PATIENT
  Age: 58 Year
  Sex: Female

DRUGS (2)
  1. TYLENOL W/ CODEINE [Suspect]
  2. VICODIN [Suspect]

REACTIONS (1)
  - DRUG DEPENDENCE [None]
